FAERS Safety Report 18359410 (Version 1)
Quarter: 2020Q4

REPORT INFORMATION
  Report Type: Spontaneous
  Country: IN (occurrence: IN)
  Receive Date: 20201008
  Receipt Date: 20201008
  Transmission Date: 20210114
  Serious: Yes (Other)
  Sender: FDA-Public Use
  Company Number: IN-SUN PHARMACEUTICAL INDUSTRIES LTD-2019R1-223406

PATIENT
  Age: 14 Year
  Sex: Female

DRUGS (9)
  1. CARBAMAZEPINE. [Interacting]
     Active Substance: CARBAMAZEPINE
     Indication: MANIA
     Dosage: 600 MILLIGRAM, DAILY(10 MG/KG/DAY)
     Route: 065
  2. LITHIUM. [Suspect]
     Active Substance: LITHIUM
     Indication: MANIA
     Dosage: 600 MG
     Route: 065
  3. VALPROIC ACID. [Interacting]
     Active Substance: VALPROIC ACID
     Dosage: REDUCED TO 1400 MG (25 MG/KG),
     Route: 065
  4. LITHIUM. [Suspect]
     Active Substance: LITHIUM
     Dosage: 450 MG (0.64 MEQ/L)
     Route: 065
  5. VALPROIC ACID. [Interacting]
     Active Substance: VALPROIC ACID
     Indication: MANIA
     Dosage: UNK
     Route: 065
  6. RISPERIDONE. [Concomitant]
     Active Substance: RISPERIDONE
     Indication: PRODUCT USED FOR UNKNOWN INDICATION
     Dosage: GRADUALLY TITRATED UP TO 8 MG
     Route: 065
  7. VALPROIC ACID. [Interacting]
     Active Substance: VALPROIC ACID
     Indication: EPILEPSY
     Dosage: GRADUALLY UP-TITRATED TO 2 GM (36MG/KG) OVER 3 WEEKS.
     Route: 065
  8. CARBAMAZEPINE. [Interacting]
     Active Substance: CARBAMAZEPINE
     Dosage: REDUCTION
  9. CLOBAZAM. [Concomitant]
     Active Substance: CLOBAZAM
     Indication: SEIZURE
     Route: 065

REACTIONS (9)
  - Polydipsia [Unknown]
  - Nocturia [Unknown]
  - Depressed level of consciousness [Recovering/Resolving]
  - Drug level increased [Unknown]
  - Hepatic enzyme increased [Recovered/Resolved]
  - Hyperammonaemia [Recovered/Resolved]
  - Drug ineffective [Unknown]
  - Drug interaction [Unknown]
  - Somnolence [Recovering/Resolving]
